FAERS Safety Report 7411003-7 (Version None)
Quarter: 2011Q2

REPORT INFORMATION
  Report Type: 
  Country: None (occurrence: None)
  Receive Date: 20110404
  Receipt Date: 20110328
  Transmission Date: 20111010
  Serious: Yes (Death)
  Sender: FDA-Public Use
  Company Number: GER/UKI/11/0017818

PATIENT
  Age: 89 Year
  Sex: Female

DRUGS (13)
  1. RISPERIDONE [Suspect]
     Indication: PARKINSON'S DISEASE
     Dosage: ORAL
     Route: 048
  2. DIGOXIN [Concomitant]
  3. FUROSEMIDE [Concomitant]
  4. LEVODOPA (LEVODOPA) [Concomitant]
  5. SINEMET [Concomitant]
  6. IRON (IRON) [Concomitant]
  7. FORTISIP (FORTISIP) [Concomitant]
  8. ROPINIROLE [Suspect]
     Indication: PARKINSON'S DISEASE
     Dosage: 3 MG, 1 IN 1 D, ORAL; 6 MG, 1 IN 1 D, ORAL
     Route: 048
  9. SPARTEINE (SPARTEINE) [Concomitant]
  10. LACTULOSE [Concomitant]
  11. AMOXICILLIN [Concomitant]
  12. CARBIMAZOLE (CARBIMAZOLE) [Concomitant]
  13. ASPIRIN [Concomitant]

REACTIONS (1)
  - WRONG DRUG ADMINISTERED [None]
